FAERS Safety Report 6203022-3 (Version None)
Quarter: 2009Q2

REPORT INFORMATION
  Report Type: 
  Country: None (occurrence: None)
  Receive Date: 20090527
  Receipt Date: 20090513
  Transmission Date: 20091009
  Serious: Yes (Death, Other)
  Sender: FDA-Public Use
  Company Number: HR-RANBAXY-2009RR-22747

PATIENT
  Age: 73 Year
  Sex: Female

DRUGS (4)
  1. CEFUROXIME [Suspect]
     Indication: URINARY TRACT INFECTION
     Dosage: 500 MG, BID
     Route: 048
  2. FUROSEMIDE [Suspect]
     Indication: RENAL FAILURE CHRONIC
  3. LISINOPRIL [Concomitant]
     Indication: HYPERTENSION
  4. CALCIUM CARBONATE [Concomitant]
     Indication: HYPERTENSION

REACTIONS (3)
  - DRUG INTERACTION [None]
  - GRANULOCYTOPENIA [None]
  - TOXIC EPIDERMAL NECROLYSIS [None]
